FAERS Safety Report 5287434-0 (Version None)
Quarter: 2007Q1

REPORT INFORMATION
  Report Type: 
  Country: None (occurrence: None)
  Receive Date: 20070116
  Receipt Date: 20060922
  Transmission Date: 20070707
  Serious: No
  Sender: FDA-Public Use
  Company Number: 2006SP003400

PATIENT
  Sex: Female

DRUGS (3)
  1. LUNESTA [Suspect]
     Indication: INSOMNIA
     Dosage: 1 MG 1X ORAL
     Route: 048
     Dates: start: 20060921, end: 20060921
  2. AMBIEN [Concomitant]
  3. WELLBUTRIN [Concomitant]

REACTIONS (1)
  - DYSGEUSIA [None]
